FAERS Safety Report 11740693 (Version 2)
Quarter: 2015Q4

REPORT INFORMATION
  Report Type: Spontaneous
  Country: US (occurrence: US)
  Receive Date: 20151110
  Receipt Date: 20151120
  Transmission Date: 20160304
  Serious: No
  Sender: FDA-Public Use
  Company Number: US-ELI_LILLY_AND_COMPANY-US201201007861

PATIENT
  Sex: Female
  Weight: 28.12 kg

DRUGS (7)
  1. FORTEO [Suspect]
     Active Substance: TERIPARATIDE
     Indication: OSTEOPOROSIS
     Dosage: 20 UG, QD
     Dates: start: 20111229
  2. FORTEO [Suspect]
     Active Substance: TERIPARATIDE
     Dosage: 20 UG, QD
     Dates: start: 201301
  3. FORTEO [Suspect]
     Active Substance: TERIPARATIDE
     Dosage: 20 UG, QD
  4. CALCIUM [Concomitant]
     Active Substance: CALCIUM
     Dosage: UNK, UNKNOWN
  5. FORTEO [Suspect]
     Active Substance: TERIPARATIDE
     Dosage: 20 UG, QD
  6. FORTEO [Suspect]
     Active Substance: TERIPARATIDE
     Dosage: 20 UG, QD
     Dates: start: 201302
  7. CALCIUM [Concomitant]
     Active Substance: CALCIUM
     Indication: SUPPLEMENTATION THERAPY
     Dosage: UNK, UNKNOWN

REACTIONS (23)
  - Skin discolouration [Unknown]
  - Nervousness [Unknown]
  - Vertigo [Unknown]
  - Arthralgia [Unknown]
  - Injection site bruising [Not Recovered/Not Resolved]
  - Tooth disorder [Unknown]
  - Panic reaction [Unknown]
  - Vulvovaginal discomfort [Unknown]
  - Anxiety [Unknown]
  - Drug dose omission [Unknown]
  - Nausea [Unknown]
  - Bone pain [Unknown]
  - Muscle spasms [Unknown]
  - Injection site erythema [Unknown]
  - Pruritus [Unknown]
  - Pain in extremity [Unknown]
  - Dizziness [Unknown]
  - Blood calcium increased [Recovered/Resolved]
  - Abdominal discomfort [Unknown]
  - Blister [Unknown]
  - Mass [Unknown]
  - Dizziness postural [Unknown]
  - Overdose [Unknown]
